FAERS Safety Report 12458902 (Version 1)
Quarter: 2016Q2

REPORT INFORMATION
  Report Type: Spontaneous
  Country: TR (occurrence: TR)
  Receive Date: 20160613
  Receipt Date: 20160613
  Transmission Date: 20160815
  Serious: Yes (Death, Hospitalization)
  Sender: FDA-Public Use
  Company Number: TR-SCIEGEN PHARMACEUTICALS INC-2016SCILIT00205

PATIENT
  Age: 65 Year
  Sex: Female

DRUGS (3)
  1. VALSARTAN/HYDROCHLOROTHIAZIDE [Suspect]
     Active Substance: HYDROCHLOROTHIAZIDE\VALSARTAN
     Indication: HYPERTENSION
     Dosage: 80/12.5 MG/DAY
     Route: 065
  2. NON-STEROIDAL ANTI-INFLAMMATORY DRUGS (NSAIDS) [Suspect]
     Active Substance: UNSPECIFIED INGREDIENT
     Indication: PAIN
     Dosage: UNK
     Route: 065
  3. ATORVASTATIN CALCIUM. [Suspect]
     Active Substance: ATORVASTATIN CALCIUM
     Indication: HYPERLIPIDAEMIA
     Dosage: 20 MG, QD
     Route: 065

REACTIONS (13)
  - Pain [Unknown]
  - Chest pain [None]
  - Sarcoidosis [Unknown]
  - Death [Fatal]
  - Metastases to bone [None]
  - Renal impairment [None]
  - Tachycardia [None]
  - Weight decreased [Unknown]
  - Fatigue [Unknown]
  - Breast cancer metastatic [None]
  - Hypercalcaemia [Unknown]
  - Pneumonia [None]
  - Decreased appetite [Unknown]
